FAERS Safety Report 4978640-0 (Version None)
Quarter: 2006Q2

REPORT INFORMATION
  Report Type: 
  Country: None (occurrence: None)
  Receive Date: 20060420
  Receipt Date: 20060216
  Transmission Date: 20061013
  Serious: Yes (Hospitalization)
  Sender: FDA-Public Use
  Company Number: US-MERCK-0602USA04660

PATIENT
  Age: 72 Year
  Sex: Male
  Weight: 100 kg

DRUGS (8)
  1. VIOXX [Suspect]
     Indication: ARTHRITIS
     Route: 048
     Dates: start: 20000301, end: 20040901
  2. PRINIVIL [Concomitant]
     Indication: HYPERTENSION
     Route: 048
  3. ZANTAC [Concomitant]
     Route: 065
  4. FLONASE [Concomitant]
     Route: 065
  5. HYDROCHLOROTHIAZIDE [Concomitant]
     Route: 065
  6. TOPROL-XL [Concomitant]
     Indication: CARDIAC DISORDER
     Route: 065
     Dates: start: 20040101
  7. ASPIRIN [Concomitant]
     Indication: PROPHYLAXIS
     Route: 065
     Dates: start: 20040101
  8. PRAVACHOL [Concomitant]
     Route: 065
     Dates: start: 20040101

REACTIONS (4)
  - ANXIETY [None]
  - DYSPEPSIA [None]
  - INJURY [None]
  - MYOCARDIAL INFARCTION [None]
